FAERS Safety Report 6555123-8 (Version None)
Quarter: 2010Q1

REPORT INFORMATION
  Report Type: 
  Country: None (occurrence: None)
  Receive Date: 20100126
  Receipt Date: 20100126
  Transmission Date: 20100710
  Serious: Yes (Other)
  Sender: FDA-Public Use
  Company Number: None

PATIENT
  Sex: Female
  Weight: 63.5036 kg

DRUGS (1)
  1. PRISTIQ [Suspect]
     Indication: ANXIETY
     Dosage: 50MG 1 DAY MOUTH
     Route: 048
     Dates: start: 20080825, end: 20090111

REACTIONS (3)
  - HYPERHIDROSIS [None]
  - HYPERTENSION [None]
  - NAUSEA [None]
